FAERS Safety Report 8920765 (Version 5)
Quarter: 2013Q1

REPORT INFORMATION
  Report Type: Spontaneous
  Country: JP (occurrence: JP)
  Receive Date: 20121122
  Receipt Date: 20130321
  Transmission Date: 20140127
  Serious: Yes (Life-Threatening, Hospitalization, Disabling)
  Sender: FDA-Public Use
  Company Number: JP-009507513-1211JPN006953

PATIENT
  Age: 46 Year
  Sex: Male
  Weight: 69 kg

DRUGS (13)
  1. JANUVIA TABLETS 50MG [Suspect]
     Indication: TYPE 2 DIABETES MELLITUS
     Dosage: 50 MG, QD
     Route: 048
     Dates: start: 2011
  2. LANTUS [Suspect]
     Indication: TYPE 2 DIABETES MELLITUS
     Dosage: 14(UNDER 1000UNIT) QD
     Route: 058
  3. CHLORPROMAZINE HYDROCHLORIDE [Suspect]
     Dosage: 50 MG, TID
     Route: 048
  4. CYSVON [Suspect]
     Dosage: 10 MG, QD
     Route: 048
  5. CRESTOR [Concomitant]
     Indication: DYSLIPIDAEMIA
     Dosage: DAILY DOSAGE UNKNOWN
     Route: 048
  6. PURSENNID (SENNOSIDES) [Concomitant]
     Indication: CONSTIPATION
     Dosage: DAILY DOSAGE UNKNOWN
     Route: 048
  7. ZOTEPINE [Concomitant]
     Indication: ANXIETY DISORDER
     Dosage: 50 MG, TID
     Route: 048
  8. LEMONAMIN [Concomitant]
     Dosage: 3 MG, TID
     Route: 048
  9. AKIRIDEN [Concomitant]
     Dosage: 1 MG, TID
     Route: 048
  10. VEGETAMIN A [Concomitant]
     Dosage: 2 DF, QD
     Route: 048
  11. ISOMYTAL [Concomitant]
     Dosage: 0.2 G, QD
     Route: 048
  12. LEXOTAN [Concomitant]
     Dosage: PRN
     Route: 048
  13. VEGETAMIN B [Concomitant]
     Dosage: 1 DF, QD
     Route: 048

REACTIONS (2)
  - Hypoglycaemic encephalopathy [Recovered/Resolved with Sequelae]
  - Pneumonia aspiration [Recovered/Resolved]
